FAERS Safety Report 9231209 (Version 1)
Quarter: 2013Q1

REPORT INFORMATION
  Report Type: Spontaneous
  Country: US (occurrence: None)
  Receive Date: 20121031
  Receipt Date: 20121031
  Transmission Date: 20140127
  Serious: No
  Sender: FDA-Public Use
  Company Number: PHEH2012US014603

PATIENT
  Age: 41 Year
  Sex: Female
  Weight: 102.9 kg

DRUGS (7)
  1. GILENYA (FTY)CAPSULE, 0.5MG [Suspect]
     Indication: RELAPSING-REMITTING MULTIPLE SCLEROSIS
     Route: 048
     Dates: start: 20120521
  2. BUPROPION HYDOCHLORIDE (BUPROPION HYDROCHLORIDE) [Concomitant]
  3. CITALOPRAM HYDROBROMIDE (CITALOPRAM HYDROBROMIDE) [Concomitant]
  4. CLONAZEPAM (CLONAZEPAM) (CLONAZEPAM) [Concomitant]
  5. LEVOTHYROXINE SODIUM (LEVOTHYROXINE SODIUM) [Concomitant]
  6. XANAX (ALPRAZOLAM) [Concomitant]
  7. ZANTAC (RANITIDINE HYDROCHLORIDE) [Concomitant]

REACTIONS (3)
  - Muscle spasms [None]
  - Weight increased [None]
  - Back pain [None]
